FAERS Safety Report 18570549 (Version 3)
Quarter: 2021Q2

REPORT INFORMATION
  Report Type: Spontaneous
  Country: US (occurrence: US)
  Receive Date: 20201202
  Receipt Date: 20210601
  Transmission Date: 20210717
  Serious: No
  Sender: FDA-Public Use
  Company Number: US-GLENMARK PHARMACEUTICALS-2020GMK050266

PATIENT

DRUGS (1)
  1. COLESEVELAM HYDROCHLORIDE TABLETS [625MG] [Suspect]
     Active Substance: COLESEVELAM HYDROCHLORIDE
     Indication: BLOOD CHOLESTEROL ABNORMAL
     Dosage: 3 DOSAGE FORM, BID (3 IN THE MORNING AND 3 AT NIGHT)
     Route: 048

REACTIONS (3)
  - Product physical issue [Unknown]
  - No adverse event [Unknown]
  - Product storage error [Unknown]
